FAERS Safety Report 5338916-4 (Version None)
Quarter: 2007Q2

REPORT INFORMATION
  Report Type: 
  Country: None (occurrence: None)
  Receive Date: 20070404
  Receipt Date: 20060309
  Transmission Date: 20071010
  Serious: Yes (Other)
  Sender: FDA-Public Use
  Company Number: HQWYE343115MAR06

PATIENT
  Age: 77 Year
  Sex: Female
  Weight: 56.75 kg

DRUGS (4)
  1. ALAVERT [Suspect]
     Indication: HYPERSENSITIVITY
     Dosage: 1 TABLET TWICE IN ONE WEEK, ORAL
     Route: 048
     Dates: start: 20050901, end: 20050901
  2. ALAVERT [Suspect]
     Indication: SEASONAL ALLERGY
     Dosage: 1 TABLET TWICE IN ONE WEEK, ORAL
     Route: 048
     Dates: start: 20050901, end: 20050901
  3. ATENOLOL [Concomitant]
  4. ENALAPRIL (ENALAPRIL) [Concomitant]

REACTIONS (2)
  - CONDITION AGGRAVATED [None]
  - HYPERTENSION [None]
